FAERS Safety Report 10215969 (Version 2)
Quarter: 2014Q2

REPORT INFORMATION
  Report Type: Report from Study
  Country: HU (occurrence: HU)
  Receive Date: 20140604
  Receipt Date: 20140604
  Transmission Date: 20141212
  Serious: Yes (Hospitalization)
  Sender: FDA-Public Use
  Company Number: HU-MPIJNJ-2014JNJ001152

PATIENT
  Sex: 0

DRUGS (1)
  1. VELCADE [Suspect]
     Indication: PRODUCT USED FOR UNKNOWN INDICATION
     Dosage: UNK
     Route: 065
     Dates: start: 20140307, end: 20140526

REACTIONS (14)
  - Pneumonia [Not Recovered/Not Resolved]
  - Investigation [Not Recovered/Not Resolved]
  - Hypoaesthesia [Unknown]
  - Injection site inflammation [Unknown]
  - Nasopharyngitis [Unknown]
  - Pyrexia [Unknown]
  - Hypoaesthesia [Unknown]
  - Arthralgia [Unknown]
  - Myalgia [Not Recovered/Not Resolved]
  - Asthenia [Not Recovered/Not Resolved]
  - Dyspnoea [Not Recovered/Not Resolved]
  - Hypoaesthesia [Not Recovered/Not Resolved]
  - Myalgia [Not Recovered/Not Resolved]
  - Asthenia [Not Recovered/Not Resolved]
